FAERS Safety Report 17281826 (Version 1)
Quarter: 2020Q1

REPORT INFORMATION
  Report Type: Spontaneous
  Country: US (occurrence: US)
  Receive Date: 20191227
  Receipt Date: 20191227
  Transmission Date: 20200409
  Serious: No
  Sender: FDA-Public Use
  Company Number: None

PATIENT
  Sex: Female

DRUGS (1)
  1. TALTZ [Suspect]
     Active Substance: IXEKIZUMAB
     Indication: PSORIASIS
     Dosage: OTHER FREQUENCY:EVERY 30 DAYS ;?
     Route: 058
     Dates: start: 2018

REACTIONS (3)
  - Renal failure [None]
  - Fungal sepsis [None]
  - Cystitis haemorrhagic [None]
